FAERS Safety Report 15939411 (Version 1)
Quarter: 2019Q1

REPORT INFORMATION
  Report Type: Spontaneous
  Country: NO (occurrence: NO)
  Receive Date: 20190208
  Receipt Date: 20190208
  Transmission Date: 20190417
  Serious: Yes (Hospitalization, Disabling)
  Sender: FDA-Public Use
  Company Number: IND-NO-009507513-1902NOR000324

PATIENT
  Age: 62 Year
  Sex: Male

DRUGS (8)
  1. EKVACILLIN [Suspect]
     Active Substance: CLOXACILLIN SODIUM
     Indication: ARTHRITIS BACTERIAL
     Dosage: 2 GRAM Q6H
     Dates: start: 20180730, end: 20180810
  2. DIOVAN [Concomitant]
     Active Substance: VALSARTAN
     Indication: HYPERTENSION
     Dosage: USED FOR MANY YEARS, THERAPY ENDED AFTER TOXIC LIVER WAS DETECTED
     Route: 048
  3. TARGINIQ ER [Suspect]
     Active Substance: NALOXONE HYDROCHLORIDE\OXYCODONE HYDROCHLORIDE
     Indication: PAIN
     Dosage: 1 DOSAGE FORM, Q12H
     Route: 048
     Dates: start: 20180730, end: 20180810
  4. ARCOXIA [Suspect]
     Active Substance: ETORICOXIB
     Indication: PAIN
     Dosage: 90 MG QD
     Route: 048
     Dates: start: 20180730, end: 20180817
  5. TRAMADOL HYDROCHLORIDE. [Suspect]
     Active Substance: TRAMADOL HYDROCHLORIDE
     Indication: PAIN
     Dosage: 50 MG, Q8H
     Dates: start: 20180730, end: 20180810
  6. SOMAC [Concomitant]
     Active Substance: PANTOPRAZOLE SODIUM
     Indication: GASTROOESOPHAGEAL REFLUX DISEASE
     Dosage: USED FOR MANY YEARS, THERAPY ENDED AFTER TOXIC LIVER WAS DETECTED
     Route: 048
  7. ACETAMINOPHEN. [Suspect]
     Active Substance: ACETAMINOPHEN
     Indication: PAIN
     Dosage: 1 GRAM EVERY 6 HOURS
     Dates: start: 20180730, end: 20180817
  8. DICLOCIL [Suspect]
     Active Substance: DICLOXACILLIN SODIUM
     Indication: ARTHRITIS BACTERIAL
     Dosage: 500 MG, EVERY 6 HOURS / TREATMENT PAUSED FROM 30-JUL-2018 TO 10-AUG-2018
     Route: 048
     Dates: start: 20180727, end: 20180827

REACTIONS (1)
  - Hepatotoxicity [Recovering/Resolving]

NARRATIVE: CASE EVENT DATE: 20180825
